FAERS Safety Report 8197752-4 (Version None)
Quarter: 2012Q1

REPORT INFORMATION
  Report Type: 
  Country: None (occurrence: None)
  Receive Date: 20120309
  Receipt Date: 20120229
  Transmission Date: 20120608
  Serious: Yes (Death)
  Sender: FDA-Public Use
  Company Number: DE-BRISTOL-MYERS SQUIBB COMPANY-16431785

PATIENT
  Age: 74 Year
  Sex: Male
  Weight: 90 kg

DRUGS (7)
  1. LEUCOVORIN CALCIUM [Suspect]
     Indication: COLORECTAL CANCER METASTATIC
  2. AMLODIPINE [Concomitant]
     Indication: HYPERTENSION
     Dosage: 5,1-0-0
     Route: 048
  3. PANTOPRAZOLE [Concomitant]
  4. CETUXIMAB [Suspect]
     Indication: COLORECTAL CANCER METASTATIC
  5. FLUOROURACIL [Suspect]
     Indication: COLORECTAL CANCER METASTATIC
  6. IRINOTECAN HCL [Suspect]
     Indication: COLORECTAL CANCER METASTATIC
  7. ACETYLSALICYLIC ACID SRT [Concomitant]

REACTIONS (1)
  - ARRHYTHMIA [None]
